FAERS Safety Report 20918055 (Version 1)
Quarter: 2022Q2

REPORT INFORMATION
  Report Type: Other
  Country: US (occurrence: None)
  Receive Date: 20220606
  Receipt Date: 20220606
  Transmission Date: 20220720
  Serious: Yes (Hospitalization, Other)
  Sender: FDA-Public Use
  Company Number: US-ROCHE-3049197

PATIENT
  Sex: Female

DRUGS (4)
  1. OCREVUS [Suspect]
     Active Substance: OCRELIZUMAB
     Indication: Multiple sclerosis
     Dosage: INFUSE 600 MG EVERY 6 MONTHS, ANTICIPATED DATE OF TREATMENT: 6 MONTHS FROM 30/7/2020?DATE OF TREATME
     Route: 065
  2. OCREVUS [Suspect]
     Active Substance: OCRELIZUMAB
     Indication: Primary progressive multiple sclerosis
  3. TYSABRI [Concomitant]
     Active Substance: NATALIZUMAB
  4. KLONOPIN [Concomitant]
     Active Substance: CLONAZEPAM

REACTIONS (9)
  - Ulcer [Unknown]
  - Upper respiratory tract infection [Unknown]
  - Cellulitis [Unknown]
  - Sepsis [Unknown]
  - Ankle fracture [Unknown]
  - Urinary tract infection [Unknown]
  - Diarrhoea [Unknown]
  - Fall [Unknown]
  - Viral titre increased [Unknown]
